FAERS Safety Report 5453018-4 (Version None)
Quarter: 2007Q3

REPORT INFORMATION
  Report Type: 
  Country: None (occurrence: None)
  Receive Date: 20070914
  Receipt Date: 20070913
  Transmission Date: 20080115
  Serious: Yes (Death)
  Sender: FDA-Public Use
  Company Number: NL-BOEHRINGER INGELHEIM PHARMACEUTICALS, INC.-2005-NL-00118NL

PATIENT
  Age: 71 Year
  Sex: Male

DRUGS (6)
  1. SPIRIVA [Suspect]
     Indication: CHRONIC OBSTRUCTIVE PULMONARY DISEASE
     Route: 055
     Dates: start: 20031101, end: 20031101
  2. ATROVENT [Suspect]
     Indication: CHRONIC OBSTRUCTIVE PULMONARY DISEASE
  3. CARDIO 100 [Concomitant]
  4. SALMETEROL [Concomitant]
  5. SERETIDE 50/250 [Concomitant]
     Dosage: 50/250 MCG
  6. TIMOLOL MALEATE [Concomitant]

REACTIONS (3)
  - DEATH [None]
  - PRURITUS [None]
  - RASH MACULAR [None]
